FAERS Safety Report 8061202-9 (Version None)
Quarter: 2012Q1

REPORT INFORMATION
  Report Type: 
  Country: None (occurrence: None)
  Receive Date: 20120120
  Receipt Date: 20110705
  Transmission Date: 20120608
  Serious: No
  Sender: FDA-Public Use
  Company Number: US-ALLERGAN-1108647US

PATIENT
  Age: 29 Year
  Sex: Female

DRUGS (1)
  1. RESTASIS [Suspect]
     Indication: PREOPERATIVE CARE
     Dosage: 1 GTT, UNK

REACTIONS (2)
  - EYELIDS PRURITUS [None]
  - EYELID OEDEMA [None]
